FAERS Safety Report 8346799-3 (Version None)
Quarter: 2012Q1

REPORT INFORMATION
  Report Type: 
  Country: None (occurrence: None)
  Receive Date: 20120315
  Receipt Date: 20110503
  Transmission Date: 20120608
  Serious: No
  Sender: FDA-Public Use
  Company Number: PHHY2011US37581

PATIENT
  Sex: Female

DRUGS (3)
  1. GILENYA [Suspect]
     Dosage: 0.5 MG, QD
  2. TELMISARTAN [Concomitant]
  3. ARICEPT [Concomitant]

REACTIONS (2)
  - GAIT DISTURBANCE [None]
  - ASTHENIA [None]
